FAERS Safety Report 4693069-0 (Version None)
Quarter: 2005Q2

REPORT INFORMATION
  Report Type: 
  Country: None (occurrence: None)
  Receive Date: 20050617
  Receipt Date: 20050607
  Transmission Date: 20051028
  Serious: Yes (Hospitalization, Other)
  Sender: FDA-Public Use
  Company Number: 200515300GDDC

PATIENT
  Age: 69 Year
  Sex: Female

DRUGS (7)
  1. LEFLUNOMIDE [Suspect]
     Indication: RHEUMATOID ARTHRITIS
     Route: 048
     Dates: start: 20010901, end: 20020115
  2. AMIODARONE [Suspect]
     Route: 048
     Dates: start: 20020115, end: 20020202
  3. METHOTREXATE [Concomitant]
     Indication: RHEUMATOID ARTHRITIS
     Dates: end: 20020207
  4. FRUSEMIDE [Concomitant]
     Indication: CARDIAC FAILURE CONGESTIVE
  5. PREDNISOLONE [Concomitant]
     Indication: CARDIAC FAILURE CONGESTIVE
  6. RAMIPRIL [Concomitant]
     Indication: CARDIAC FAILURE CONGESTIVE
  7. FOLIC ACID [Concomitant]
     Indication: RHEUMATOID ARTHRITIS

REACTIONS (3)
  - DRUG PRESCRIBING ERROR [None]
  - MEDICATION ERROR [None]
  - PNEUMONITIS [None]
